FAERS Safety Report 6806833-6 (Version None)
Quarter: 2010Q2

REPORT INFORMATION
  Report Type: 
  Country: None (occurrence: None)
  Receive Date: 20100629
  Receipt Date: 20100623
  Transmission Date: 20101027
  Serious: Yes (Death)
  Sender: FDA-Public Use
  Company Number: KR-ELI_LILLY_AND_COMPANY-KR201006006877

PATIENT

DRUGS (6)
  1. PEMETREXED [Suspect]
     Indication: NON-SMALL CELL LUNG CANCER
     Dosage: 500 MG/M2, EVERY 3 WEEKS
     Route: 042
  2. DEXAMETHASONE [Concomitant]
     Dosage: 4 MG, 2/D, DAY BEFORE PEMETREXED DOSE
     Route: 065
  3. DEXAMETHASONE [Concomitant]
     Dosage: 4 MG, 2/D, DAY OF PEMETREXED DOSE
     Route: 065
  4. DEXAMETHASONE [Concomitant]
     Dosage: 4 MG, 2/D, DAY AFTER PEMETREXED DOSE
     Route: 065
  5. FOLIC ACID [Concomitant]
     Dosage: 1000 UG, DAILY (1/D)
     Route: 048
  6. VITAMIN B-12 [Concomitant]
     Dosage: 1000 UG, EVERY NINE WEEKS
     Route: 030

REACTIONS (1)
  - PNEUMONIA [None]
